FAERS Safety Report 13819539 (Version 1)
Quarter: 2017Q3

REPORT INFORMATION
  Report Type: Report from Study
  Country: US (occurrence: US)
  Receive Date: 20170731
  Receipt Date: 20170731
  Transmission Date: 20171127
  Serious: No
  Sender: FDA-Public Use
  Company Number: US-EXELIXIS-CABO-17008955

PATIENT
  Age: 78 Year
  Sex: Male

DRUGS (25)
  1. CALCIUM CARBONATE. [Concomitant]
     Active Substance: CALCIUM CARBONATE
  2. LEVEMIR [Concomitant]
     Active Substance: INSULIN DETEMIR
  3. MENTHOL. [Concomitant]
     Active Substance: MENTHOL
  4. ASCORBIC ACID. [Concomitant]
     Active Substance: ASCORBIC ACID
  5. CHOLECALCIFEROL [Concomitant]
     Active Substance: CHOLECALCIFEROL
  6. NOVOLOG [Concomitant]
     Active Substance: INSULIN ASPART
  7. OXYCODONE [Concomitant]
     Active Substance: OXYCODONE
  8. PROTONIX [Concomitant]
     Active Substance: PANTOPRAZOLE SODIUM
  9. ENOXAPARIN [Concomitant]
     Active Substance: ENOXAPARIN
  10. HYDROXYZINE [Concomitant]
     Active Substance: HYDROXYZINE HYDROCHLORIDE
  11. DIMETHICON [Concomitant]
  12. PREDNISONE. [Concomitant]
     Active Substance: PREDNISONE
  13. CABOMETYX [Suspect]
     Active Substance: CABOZANTINIB S-MALATE
     Indication: RENAL CANCER
     Dosage: 60 MG, QD
     Route: 048
     Dates: start: 20170227
  14. COMPAZINE [Concomitant]
     Active Substance: PROCHLORPERAZINE MALEATE
  15. AMIODARONE [Concomitant]
     Active Substance: AMIODARONE
  16. ZOMETA [Concomitant]
     Active Substance: ZOLEDRONIC ACID
  17. ASA [Concomitant]
     Active Substance: ASPIRIN
  18. LEVOTHYROXINE. [Concomitant]
     Active Substance: LEVOTHYROXINE
  19. ELAXIC [Concomitant]
  20. PROSCAR [Concomitant]
     Active Substance: FINASTERIDE
  21. FOLIC ACID. [Concomitant]
     Active Substance: FOLIC ACID
  22. ALOE VERA [Concomitant]
     Active Substance: ALOE VERA LEAF
  23. GLUCOPHAGE [Concomitant]
     Active Substance: METFORMIN HYDROCHLORIDE
  24. LOPRESSOR [Concomitant]
     Active Substance: METOPROLOL TARTRATE
  25. ACCUPRIL [Concomitant]
     Active Substance: QUINAPRIL HYDROCHLORIDE

REACTIONS (5)
  - Blister [Unknown]
  - Speech disorder [Unknown]
  - Feeding disorder [Unknown]
  - Hypoacusis [Unknown]
  - Oral pain [Unknown]

NARRATIVE: CASE EVENT DATE: 20170314
